FAERS Safety Report 4501567-5 (Version None)
Quarter: 2004Q3

REPORT INFORMATION
  Report Type: 
  Country: None (occurrence: None)
  Receive Date: 20040928
  Receipt Date: 20040824
  Transmission Date: 20050211
  Serious: No
  Sender: FDA-Public Use
  Company Number: 04P-163-0271308-00

PATIENT
  Age: 55 Year
  Sex: Male
  Weight: 110.2241 kg

DRUGS (6)
  1. HUMIRA [Suspect]
     Indication: RHEUMATOID ARTHRITIS
     Dosage: 40 MG, 1 IN 1 WK, SUBCUTANEOUS
     Route: 058
     Dates: start: 20030101, end: 20040501
  2. HUMIRA [Suspect]
     Indication: RHEUMATOID ARTHRITIS
     Dosage: 40 MG, 1 IN 1 WK, SUBCUTANEOUS
     Route: 058
     Dates: start: 20040501
  3. METHOTREXATE [Suspect]
     Indication: RHEUMATOID ARTHRITIS
     Dosage: 25 MG,  1 IN 1 WK, PER ORAL
     Route: 048
     Dates: start: 20010101
  4. FOLINIC ACID [Concomitant]
  5. PREDNISONE [Concomitant]
  6. CEVIMELINE HYDROCHLORIDE [Concomitant]

REACTIONS (2)
  - HALITOSIS [None]
  - ORAL CANDIDIASIS [None]
